FAERS Safety Report 14343891 (Version 5)
Quarter: 2018Q2

REPORT INFORMATION
  Report Type: Report from Study
  Country: US (occurrence: US)
  Receive Date: 20180102
  Receipt Date: 20180529
  Transmission Date: 20180711
  Serious: Yes (Death, Hospitalization, Other)
  Sender: FDA-Public Use
  Company Number: US-ACTELION-A-NJ2017-164899

PATIENT
  Age: 69 Year
  Sex: Male
  Weight: 74.83 kg

DRUGS (9)
  1. UPTRAVI [Suspect]
     Active Substance: SELEXIPAG
     Dosage: 1400 MCG, BID
     Route: 048
  2. FINASTERIDE. [Concomitant]
     Active Substance: FINASTERIDE
     Dosage: 5 MG, UNK
     Dates: end: 20180214
  3. ADENOSINE. [Concomitant]
     Active Substance: ADENOSINE
  4. UPTRAVI [Suspect]
     Active Substance: SELEXIPAG
     Indication: PULMONARY HYPERTENSION
     Dosage: 1000 MCG, BID
     Route: 048
     Dates: start: 201705
  5. AMIODARONE [Concomitant]
     Active Substance: AMIODARONE
     Dosage: 200 MG, QD
     Dates: end: 20180214
  6. METOPROLOL. [Concomitant]
     Active Substance: METOPROLOL
     Dosage: 25 MG (1/2 TAB), BID
     Dates: end: 20180214
  7. SILDENAFIL. [Concomitant]
     Active Substance: SILDENAFIL
     Dosage: 20 MG, TID
     Dates: start: 20170607, end: 20180214
  8. PRADAXA [Concomitant]
     Active Substance: DABIGATRAN ETEXILATE MESYLATE
     Dosage: 150 MG, BID
     Dates: end: 20180214
  9. FUROSEMIDE. [Concomitant]
     Active Substance: FUROSEMIDE
     Dosage: 40 MG, UNK
     Dates: end: 20180214

REACTIONS (12)
  - Right-to-left cardiac shunt [Unknown]
  - Dyspnoea exertional [Unknown]
  - Cardioversion [Unknown]
  - Hypoxia [Unknown]
  - Atrial flutter [Unknown]
  - Supraventricular tachycardia [Unknown]
  - Cardiac pacemaker insertion [Unknown]
  - Cardiac ablation [Unknown]
  - High frequency ablation [Unknown]
  - Ventricular tachycardia [Unknown]
  - Death [Fatal]
  - Palpitations [Unknown]

NARRATIVE: CASE EVENT DATE: 20171220
